FAERS Safety Report 22993184 (Version 2)
Quarter: 2023Q4

REPORT INFORMATION
  Report Type: Spontaneous
  Country: US (occurrence: US)
  Receive Date: 20230927
  Receipt Date: 20231030
  Transmission Date: 20240109
  Serious: Yes (Other)
  Sender: FDA-Public Use
  Company Number: US-009507513-2309USA007533

PATIENT
  Age: 61 Year
  Sex: Female
  Weight: 61.224 kg

DRUGS (5)
  1. DIFICID [Suspect]
     Active Substance: FIDAXOMICIN
     Indication: Systemic bacterial infection
     Dosage: 200MG/TWICE DAILY FOR TEN DAYS
     Route: 048
     Dates: start: 20230822, end: 20230901
  2. DIFICID [Suspect]
     Active Substance: FIDAXOMICIN
     Indication: Clostridium difficile infection
  3. PROZAC [Concomitant]
     Active Substance: FLUOXETINE HYDROCHLORIDE
     Dosage: UNK
  4. WELLBUTRIN [Concomitant]
     Active Substance: BUPROPION HYDROCHLORIDE
     Dosage: UNK
  5. IBUPROFEN [Concomitant]
     Active Substance: IBUPROFEN
     Dosage: UNK

REACTIONS (11)
  - Eye swelling [Unknown]
  - Eye pruritus [Unknown]
  - Dry skin [Unknown]
  - Swelling of eyelid [Unknown]
  - Periorbital swelling [Unknown]
  - Skin exfoliation [Not Recovered/Not Resolved]
  - Pigmentation disorder [Not Recovered/Not Resolved]
  - Skin depigmentation [Not Recovered/Not Resolved]
  - Eye discharge [Not Recovered/Not Resolved]
  - Drug ineffective [Not Recovered/Not Resolved]
  - Hypersensitivity [Not Recovered/Not Resolved]

NARRATIVE: CASE EVENT DATE: 20230901
